FAERS Safety Report 23937360 (Version 1)
Quarter: 2024Q2

REPORT INFORMATION
  Report Type: Spontaneous
  Country: US (occurrence: US)
  Receive Date: 20240604
  Receipt Date: 20240604
  Transmission Date: 20240715
  Serious: No
  Sender: FDA-Public Use
  Company Number: US-PFIZER INC-PV202400071635

PATIENT
  Age: 63 Year
  Sex: Male

DRUGS (1)
  1. NURTEC ODT [Suspect]
     Active Substance: RIMEGEPANT SULFATE
     Dosage: 1 DF, (DISSOLVE EVERY OTHER DAY MAX 1 TABLET PER 24 HOURS)
     Route: 048

REACTIONS (1)
  - Abdominal pain upper [Unknown]
